FAERS Safety Report 7643626-4 (Version None)
Quarter: 2011Q3

REPORT INFORMATION
  Report Type: 
  Country: None (occurrence: None)
  Receive Date: 20110729
  Receipt Date: 20110721
  Transmission Date: 20111222
  Serious: Yes (Other)
  Sender: FDA-Public Use
  Company Number: PHHY2011DE66196

PATIENT
  Sex: Female
  Weight: 53 kg

DRUGS (2)
  1. ZOMETA [Suspect]
     Indication: METASTASES TO BONE
     Dosage: 4 MG, EVERY 4 WEEKS
     Route: 042
     Dates: start: 20100301, end: 20101202
  2. NAVELBINE [Concomitant]
     Dosage: 30 MG, UNK
     Dates: start: 20100301

REACTIONS (4)
  - OSTEONECROSIS OF JAW [None]
  - METASTASIS [None]
  - NEOPLASM PROGRESSION [None]
  - NEOPLASM MALIGNANT [None]
